FAERS Safety Report 8264883-X (Version None)
Quarter: 2012Q2

REPORT INFORMATION
  Report Type: 
  Country: None (occurrence: None)
  Receive Date: 20120403
  Receipt Date: 20120323
  Transmission Date: 20120825
  Serious: Yes (Other)
  Sender: FDA-Public Use
  Company Number: 1211046

PATIENT
  Age: 55 Year
  Sex: Female

DRUGS (6)
  1. METHYLPREDNISOLONE [Concomitant]
  2. POLARAMINE [Concomitant]
  3. ONDANSETRON [Concomitant]
  4. OXALIPLATIN [Suspect]
     Indication: OESOPHAGEAL CARCINOMA
     Dosage: 130 MG MILLIGRAM(S), 2 WEEK, INTRAVENOUS (NOT OTHERWISE SPECIFIED)
     Route: 042
     Dates: start: 20110722, end: 20110902
  5. LEUCOVORIN CALCIUM [Concomitant]
  6. FLUOROURACIL [Concomitant]

REACTIONS (8)
  - MALAISE [None]
  - DYSPNOEA [None]
  - SKIN TEST POSITIVE [None]
  - OBSTRUCTION [None]
  - ERYTHEMA [None]
  - OXYGEN SATURATION DECREASED [None]
  - PHARYNGEAL DISORDER [None]
  - INFUSION RELATED REACTION [None]
